FAERS Safety Report 8326159-1 (Version None)
Quarter: 2012Q2

REPORT INFORMATION
  Report Type: 
  Country: None (occurrence: None)
  Receive Date: 20120501
  Receipt Date: 20120427
  Transmission Date: 20120825
  Serious: Yes (Life-Threatening, Hospitalization)
  Sender: FDA-Public Use
  Company Number: PL-ROCHE-1063292

PATIENT
  Sex: Female
  Weight: 55 kg

DRUGS (5)
  1. OSTEMAX [Concomitant]
     Indication: OSTEOPOROSIS
     Route: 048
     Dates: start: 20100101
  2. PREDNISONE [Suspect]
     Indication: RHEUMATOID ARTHRITIS
     Dates: start: 20090101
  3. MABTHERA [Suspect]
     Indication: RHEUMATOID ARTHRITIS
     Route: 042
     Dates: start: 20120412
  4. FOLIC ACID [Concomitant]
     Route: 048
     Dates: start: 20090101
  5. METHOTREXATE [Suspect]
     Indication: RHEUMATOID ARTHRITIS
     Route: 048
     Dates: start: 20090101

REACTIONS (2)
  - VOLVULUS OF SMALL BOWEL [None]
  - GASTROINTESTINAL NECROSIS [None]
